FAERS Safety Report 22197582 (Version 1)
Quarter: 2023Q2

REPORT INFORMATION
  Report Type: Spontaneous
  Country: US (occurrence: US)
  Receive Date: 20230411
  Receipt Date: 20230411
  Transmission Date: 20230722
  Serious: Yes (Death, Hospitalization, Other)
  Sender: FDA-Public Use
  Company Number: US-RECORDATI-2023002135

PATIENT

DRUGS (8)
  1. PASIREOTIDE [Suspect]
     Active Substance: PASIREOTIDE
     Indication: Hypoglycaemia
     Dosage: 40 MILLIGRAM, QM
     Route: 030
  2. PASIREOTIDE [Suspect]
     Active Substance: PASIREOTIDE
     Indication: Off label use
  3. DEXTROSE [Suspect]
     Active Substance: DEXTROSE\DEXTROSE MONOHYDRATE
     Indication: Hypoglycaemia
     Dosage: UNK
     Route: 042
  4. PREDNISONE [Suspect]
     Active Substance: PREDNISONE
     Indication: Hypoglycaemia
     Dosage: 10 MILLIGRAM, BID
  5. TEMOZOLOMIDE [Suspect]
     Active Substance: TEMOZOLOMIDE
     Indication: Chemotherapy
  6. CAPECITABINE [Suspect]
     Active Substance: CAPECITABINE
     Indication: Chemotherapy
  7. OCTREOTIDE [Concomitant]
     Active Substance: OCTREOTIDE
     Indication: Product used for unknown indication
     Dosage: 30 MILLIGRAM, QM
     Route: 030
  8. PROPRANOLOL [Concomitant]
     Active Substance: PROPRANOLOL HYDROCHLORIDE
     Indication: Portal hypertension

REACTIONS (4)
  - Death [Fatal]
  - Gastrointestinal haemorrhage [Unknown]
  - Metastases to liver [Unknown]
  - Drug ineffective for unapproved indication [Recovered/Resolved]
